FAERS Safety Report 17077818 (Version 1)
Quarter: 2019Q4

REPORT INFORMATION
  Report Type: Report from Study
  Country: US (occurrence: US)
  Receive Date: 20191126
  Receipt Date: 20191126
  Transmission Date: 20200122
  Serious: Yes (Other)
  Sender: FDA-Public Use
  Company Number: NVSC2019US048423

PATIENT
  Age: 62 Year
  Sex: Male

DRUGS (1)
  1. GILENYA [Suspect]
     Active Substance: FINGOLIMOD HYDROCHLORIDE
     Indication: MULTIPLE SCLEROSIS
     Dosage: UNK, QD
     Route: 048

REACTIONS (6)
  - Lymphopenia [Not Recovered/Not Resolved]
  - Tinea pedis [Not Recovered/Not Resolved]
  - Seborrhoeic keratosis [Not Recovered/Not Resolved]
  - Actinic keratosis [Not Recovered/Not Resolved]
  - White blood cell count decreased [Unknown]
  - Haemangioma of skin [Not Recovered/Not Resolved]

NARRATIVE: CASE EVENT DATE: 20170213
